FAERS Safety Report 25841678 (Version 1)
Quarter: 2025Q3

REPORT INFORMATION
  Report Type: Spontaneous
  Country: US (occurrence: US)
  Receive Date: 20250924
  Receipt Date: 20250924
  Transmission Date: 20251020
  Serious: Yes (Hospitalization)
  Sender: LEO PHARM
  Company Number: US-LEO Pharma-382890

PATIENT
  Age: 82 Year
  Sex: Male

DRUGS (10)
  1. ADBRY [Suspect]
     Active Substance: TRALOKINUMAB-LDRM
     Indication: Dermatitis atopic
  2. BUMETANIDE [Concomitant]
     Active Substance: BUMETANIDE
     Indication: Product used for unknown indication
  3. MEXILETINE HCL [Concomitant]
     Active Substance: MEXILETINE HYDROCHLORIDE
     Indication: Product used for unknown indication
  4. DOBUTAMINE HYDROCHLORIDE [Concomitant]
     Active Substance: DOBUTAMINE HYDROCHLORIDE
     Indication: Product used for unknown indication
  5. TAMSULOSIN HYDROCHLORIDE [Concomitant]
     Active Substance: TAMSULOSIN HYDROCHLORIDE
     Indication: Product used for unknown indication
  6. SPIRONOLACTONE [Concomitant]
     Active Substance: SPIRONOLACTONE
     Indication: Product used for unknown indication
  7. VITAMIN B12 [Concomitant]
     Active Substance: CYANOCOBALAMIN
     Indication: Product used for unknown indication
  8. MIDODRINE HYDROCHLORIDE [Concomitant]
     Active Substance: MIDODRINE HYDROCHLORIDE
     Indication: Product used for unknown indication
  9. IRON [Concomitant]
     Active Substance: IRON
     Indication: Product used for unknown indication
  10. ASPIRIN [Concomitant]
     Active Substance: ASPIRIN
     Indication: Product used for unknown indication

REACTIONS (2)
  - Fluid retention [Unknown]
  - Cardiac disorder [Unknown]
